FAERS Safety Report 8544904-7 (Version None)
Quarter: 2012Q3

REPORT INFORMATION
  Report Type: 
  Country: None (occurrence: None)
  Receive Date: 20120727
  Receipt Date: 20120723
  Transmission Date: 20120928
  Serious: Yes (Death, Other)
  Sender: FDA-Public Use
  Company Number: US-TEVA-350149USA

PATIENT
  Age: 65 Year
  Sex: Male

DRUGS (5)
  1. LEVETIRACETAM [Interacting]
     Dosage: MAXIMAL DOSING
     Route: 065
  2. VALPROIC ACID [Interacting]
     Dosage: MAXIMAL DOSING
     Route: 065
  3. ASCORBIC ACID [Suspect]
     Indication: SMALL CELL LUNG CANCER METASTATIC
     Dosage: INCREASING DOSES BIWEEKLY
     Route: 041
  4. VISCUM ALBUM EXTRACT [Interacting]
     Dosage: EVERY 3 DAYS
     Route: 065
  5. VISCUM ALBUM EXTRACT [Interacting]
     Indication: SMALL CELL LUNG CANCER METASTATIC
     Dosage: EVERY 3 DAYS
     Route: 065

REACTIONS (10)
  - CONVULSIVE THRESHOLD LOWERED [None]
  - HEMIPARESIS [None]
  - CONDITION AGGRAVATED [None]
  - OEDEMA [None]
  - FATIGUE [None]
  - DRUG INTERACTION [None]
  - CONFUSIONAL STATE [None]
  - CEREBRAL HAEMORRHAGE [None]
  - CONVULSION [None]
  - DEATH [None]
